FAERS Safety Report 10736411 (Version 1)
Quarter: 2015Q1

REPORT INFORMATION
  Report Type: Spontaneous
  Country: JP (occurrence: None)
  Receive Date: 20150122
  Receipt Date: 20150122
  Transmission Date: 20150721
  Serious: Yes (Other)
  Sender: FDA-Public Use
  Company Number: 2015MAR00002

PATIENT
  Age: 72 Year
  Sex: Male

DRUGS (2)
  1. NIFEDIPINE (NIFEDIPINE) [Concomitant]
  2. FAMOTIDINE (FAMOTIDINE) [Suspect]
     Active Substance: FAMOTIDINE
     Indication: GASTRIC ULCER
     Dosage: 40MG, 1X/DAY
     Dates: start: 19970801

REACTIONS (2)
  - Acute kidney injury [None]
  - Tubulointerstitial nephritis [None]

NARRATIVE: CASE EVENT DATE: 1997
